FAERS Safety Report 7098198-2 (Version None)
Quarter: 2010Q4

REPORT INFORMATION
  Report Type: 
  Country: None (occurrence: None)
  Receive Date: 20101112
  Receipt Date: 20091123
  Transmission Date: 20110411
  Serious: No
  Sender: FDA-Public Use
  Company Number: US-KINGPHARMUSA00001-K200901466

PATIENT
  Age: 52 Year
  Sex: Female

DRUGS (13)
  1. SKELAXIN [Interacting]
     Dosage: UNK
  2. CYMBALTA [Interacting]
     Dosage: UNK
  3. HYDROCODONE [Suspect]
     Dosage: UNK
  4. PHENOBARBITAL [Suspect]
     Dosage: UNK
  5. OXYCODONE HCL [Suspect]
     Dosage: UNK
  6. FIORICET [Suspect]
     Dosage: UNK
  7. BUTALBITAL [Suspect]
     Dosage: UNK
  8. MECLIZINE [Suspect]
     Dosage: UNK
  9. ASPIRIN [Suspect]
     Dosage: UNK
  10. VITAMIN D3 [Suspect]
     Dosage: UNK
  11. FLAXSEED OIL [Suspect]
     Dosage: UNK
  12. NASONEX [Suspect]
     Dosage: UNK
  13. FISH OIL [Suspect]
     Dosage: UNK

REACTIONS (2)
  - DRUG INTERACTION [None]
  - DRUG SCREEN NEGATIVE [None]
